FAERS Safety Report 5140642-1 (Version None)
Quarter: 2006Q4

REPORT INFORMATION
  Report Type: 
  Country: None (occurrence: None)
  Receive Date: 20061025
  Receipt Date: 20061016
  Transmission Date: 20070319
  Serious: Yes (Other)
  Sender: FDA-Public Use
  Company Number: 2006126727

PATIENT
  Age: 22 Year
  Sex: Female
  Weight: 83.2 kg

DRUGS (1)
  1. GENOTROPIN [Suspect]
     Indication: HYPOPITUITARISM
     Dosage: 0.7 MG (0.7 MG, FREQUENCY: OD)
     Dates: start: 20050812

REACTIONS (7)
  - ADENOMA BENIGN [None]
  - HYPOPITUITARISM [None]
  - NEOPLASM RECURRENCE [None]
  - NERVE COMPRESSION [None]
  - NERVOUS SYSTEM DISORDER [None]
  - OPTIC NERVE DISORDER [None]
  - POST PROCEDURAL COMPLICATION [None]
